FAERS Safety Report 26179402 (Version 1)
Quarter: 2025Q4

REPORT INFORMATION
  Report Type: Spontaneous
  Country: US (occurrence: US)
  Receive Date: 20251219
  Receipt Date: 20251219
  Transmission Date: 20260118
  Serious: No
  Sender: BAYER HEALTHCARE LLC
  Company Number: US-BAYER-2025A166753

PATIENT
  Age: 92 Year
  Sex: Female

DRUGS (1)
  1. MIRALAX [Suspect]
     Active Substance: POLYETHYLENE GLYCOL 3350
     Indication: Small intestinal obstruction
     Dosage: LESS THAN THE DAILY RECOMMENDED DOSE

REACTIONS (3)
  - Diarrhoea [None]
  - Incorrect product administration duration [None]
  - Incorrect dose administered [None]
